FAERS Safety Report 14466080 (Version 1)
Quarter: 2018Q1

REPORT INFORMATION
  Report Type: Report from Study
  Country: US (occurrence: US)
  Receive Date: 20180131
  Receipt Date: 20180131
  Transmission Date: 20180509
  Serious: No
  Sender: FDA-Public Use
  Company Number: US-AMGEN-USASL2018012675

PATIENT
  Age: 71 Year
  Sex: Female

DRUGS (1)
  1. ENBREL [Suspect]
     Active Substance: ETANERCEPT
     Indication: PSORIATIC ARTHROPATHY
     Dosage: UNK, QWK
     Route: 065

REACTIONS (7)
  - Sinus congestion [Unknown]
  - Malaise [Unknown]
  - Fatigue [Unknown]
  - Cough [Unknown]
  - Sneezing [Unknown]
  - Influenza like illness [Unknown]
  - Head discomfort [Unknown]

NARRATIVE: CASE EVENT DATE: 201801
